FAERS Safety Report 20786226 (Version 1)
Quarter: 2022Q2

REPORT INFORMATION
  Report Type: Spontaneous
  Country: US (occurrence: None)
  Receive Date: 20220504
  Receipt Date: 20220504
  Transmission Date: 20220720
  Serious: No
  Sender: FDA-Public Use
  Company Number: US-ROCHE-2971870

PATIENT
  Age: 33 Year
  Sex: Female
  Weight: 63.560 kg

DRUGS (1)
  1. OCREVUS [Suspect]
     Active Substance: OCRELIZUMAB
     Indication: Tumefactive multiple sclerosis
     Route: 042
     Dates: start: 202005

REACTIONS (4)
  - Cough [Unknown]
  - Illness [Unknown]
  - Nasopharyngitis [Unknown]
  - Off label use [Unknown]

NARRATIVE: CASE EVENT DATE: 20200501
